FAERS Safety Report 6307780-9 (Version None)
Quarter: 2009Q3

REPORT INFORMATION
  Report Type: 
  Country: None (occurrence: None)
  Receive Date: 20090813
  Receipt Date: 20090803
  Transmission Date: 20100115
  Serious: Yes (Other)
  Sender: FDA-Public Use
  Company Number: CA-JNJFOC-20090801305

PATIENT
  Sex: Female
  Weight: 46 kg

DRUGS (4)
  1. REMICADE [Suspect]
     Indication: RHEUMATOID ARTHRITIS
     Dosage: 100 MG/VIAL
     Route: 042
  2. VOLTAREN [Suspect]
     Indication: DRUG USE FOR UNKNOWN INDICATION
  3. COVERSYL [Concomitant]
  4. COVERSYL [Concomitant]
     Indication: HYPERTENSION

REACTIONS (7)
  - ANAEMIA [None]
  - HAEMATURIA [None]
  - HEADACHE [None]
  - HYPERTENSION [None]
  - HYPOTENSION [None]
  - PROTEINURIA [None]
  - RENAL DISORDER [None]
